FAERS Safety Report 25362317 (Version 1)
Quarter: 2025Q2

REPORT INFORMATION
  Report Type: Spontaneous
  Country: US (occurrence: None)
  Receive Date: 20250524
  Receipt Date: 20250524
  Transmission Date: 20250717
  Serious: Yes (unspecified)
  Sender: FDA-CTU
  Company Number: None

PATIENT
  Age: 78 Year
  Sex: Male
  Weight: 72.9 kg

DRUGS (6)
  1. POLYVINYL ALCOHOL [Suspect]
     Active Substance: POLYVINYL ALCOHOL
     Indication: Product used for unknown indication
     Dosage: FREQUENCY : EVERY 6 HOURS?
     Route: 047
  2. thyroid med [Concomitant]
  3. OXYCODONE [Concomitant]
     Active Substance: OXYCODONE
  4. VITAMIN C [Concomitant]
     Active Substance: ASCORBIC ACID
  5. Vit D. [Concomitant]
  6. COENZYME Q10 [Concomitant]
     Active Substance: DIETARY SUPPLEMENT\UBIDECARENONE

REACTIONS (1)
  - Eye infection [None]

NARRATIVE: CASE EVENT DATE: 20250310
